FAERS Safety Report 9552408 (Version 1)
Quarter: 2013Q3

REPORT INFORMATION
  Report Type: Spontaneous
  Country: US (occurrence: None)
  Receive Date: 20130924
  Receipt Date: 20130924
  Transmission Date: 20140515
  Serious: Yes (Other)
  Sender: FDA-Public Use
  Company Number: None

PATIENT
  Age: 54 Year
  Sex: Male
  Weight: 81.65 kg

DRUGS (1)
  1. TECFIDERA [Suspect]
     Indication: MULTIPLE SCLEROSIS
     Dosage: 2 X 250 MG TWICE DAILY TAKEN BY MOUTH
     Route: 048

REACTIONS (6)
  - Vertigo [None]
  - Multiple sclerosis [None]
  - Deafness bilateral [None]
  - Impaired driving ability [None]
  - Job dissatisfaction [None]
  - Abasia [None]
